FAERS Safety Report 8722299 (Version 2)
Quarter: 2012Q4

REPORT INFORMATION
  Report Type: 
  Country: US (occurrence: US)
  Receive Date: 20120814
  Receipt Date: 20120906
  Transmission Date: 20130627
  Serious: Yes (Other)
  Sender: FDA-Public Use
  Company Number: US-SANOFI-AVENTIS-2012SA056427

PATIENT
  Age: 86 Year
  Sex: Male
  Weight: 64 kg

DRUGS (9)
  1. ELIGARD [Suspect]
     Route: 065
     Dates: start: 20070709, end: 20070709
  2. ELIGARD [Suspect]
     Route: 065
     Dates: start: 20120418, end: 20120418
  3. ASPIRIN [Concomitant]
  4. COREG [Concomitant]
  5. COUMADIN [Concomitant]
  6. POTASSIUM CHLORIDE [Concomitant]
  7. PRAVACHOL [Concomitant]
  8. TIKOSYN [Concomitant]
  9. TOPROL XL [Concomitant]

REACTIONS (1)
  - Injection site haemorrhage [Recovered/Resolved]
